FAERS Safety Report 23447837 (Version 1)
Quarter: 2024Q1

REPORT INFORMATION
  Report Type: Spontaneous
  Country: NO (occurrence: NO)
  Receive Date: 20240126
  Receipt Date: 20240126
  Transmission Date: 20240410
  Serious: Yes (Other)
  Sender: FDA-Public Use
  Company Number: NO-ELI_LILLY_AND_COMPANY-NO202401010177

PATIENT
  Age: 30 Year
  Sex: Female

DRUGS (2)
  1. EMGALITY [Suspect]
     Active Substance: GALCANEZUMAB-GNLM
     Indication: Migraine prophylaxis
     Dosage: 1 DOSAGE FORM, MONTHLY (1/M)
     Route: 058
     Dates: start: 20230703, end: 20231003
  2. ALBYL-ENTEROSOLUBILE [Concomitant]
     Indication: Prophylaxis
     Dosage: 75 MG
     Dates: start: 2009

REACTIONS (9)
  - Bradycardia [Unknown]
  - Syncope [Unknown]
  - Brain fog [Unknown]
  - Heart rate decreased [Unknown]
  - Palpitations [Recovering/Resolving]
  - Dizziness [Unknown]
  - Skin haemorrhage [Unknown]
  - Hypoaesthesia [Recovering/Resolving]
  - Pruritus [Recovered/Resolved]

NARRATIVE: CASE EVENT DATE: 20230724
